FAERS Safety Report 6379068-1 (Version None)
Quarter: 2009Q3

REPORT INFORMATION
  Report Type: 
  Country: None (occurrence: None)
  Receive Date: 20090923
  Receipt Date: 20090910
  Transmission Date: 20100115
  Serious: Yes (Other)
  Sender: FDA-Public Use
  Company Number: 2009AP003663

PATIENT

DRUGS (1)
  1. TERBINAFINE HCL [Suspect]
     Dosage: PO
     Route: 048

REACTIONS (2)
  - AURA [None]
  - VISUAL IMPAIRMENT [None]
